FAERS Safety Report 8427529-3 (Version None)
Quarter: 2012Q2

REPORT INFORMATION
  Report Type: 
  Country: None (occurrence: None)
  Receive Date: 20120611
  Receipt Date: 20120604
  Transmission Date: 20120825
  Serious: Yes (Hospitalization)
  Sender: FDA-Public Use
  Company Number: IT-NAPPMUNDI-GBR-2012-0010748

PATIENT
  Sex: Female

DRUGS (8)
  1. CETIRIZINE HCL [Concomitant]
  2. ESCITALOPRAM OXALATE [Concomitant]
  3. PALEXIA [Concomitant]
  4. OMEPRAZOLE [Concomitant]
  5. PARACETAMOL WITH CODEINE PHOSPHATE [Concomitant]
  6. OXYCODONE HCL [Suspect]
     Indication: PAIN
     Dosage: 10 MG, DAILY
     Route: 048
     Dates: start: 20110301, end: 20110625
  7. LEVOTHYROXINE SODIUM [Concomitant]
  8. TRIAZOLAM [Concomitant]

REACTIONS (2)
  - PRURITUS [None]
  - DERMATITIS BULLOUS [None]
